FAERS Safety Report 5840114-2 (Version None)
Quarter: 2008Q3

REPORT INFORMATION
  Report Type: 
  Country: None (occurrence: None)
  Receive Date: 20080811
  Receipt Date: 20080808
  Transmission Date: 20090109
  Serious: Yes (Death)
  Sender: FDA-Public Use
  Company Number: B0532678A

PATIENT
  Age: 76 Year
  Sex: Male

DRUGS (5)
  1. SAWACILLIN [Suspect]
     Route: 048
     Dates: start: 20080222, end: 20080228
  2. CLARITHROMYCIN [Concomitant]
     Route: 065
     Dates: start: 20080222, end: 20080228
  3. PARIET [Concomitant]
     Route: 065
     Dates: start: 20080222, end: 20080328
  4. SELBEX [Concomitant]
     Route: 065
     Dates: start: 20080229, end: 20080328
  5. NEUER [Concomitant]
     Route: 065
     Dates: start: 20080229, end: 20080328

REACTIONS (2)
  - DEATH [None]
  - HEPATIC NEOPLASM MALIGNANT [None]
